FAERS Safety Report 6585194-4 (Version None)
Quarter: 2010Q1

REPORT INFORMATION
  Report Type: 
  Country: None (occurrence: None)
  Receive Date: 20100217
  Receipt Date: 20100205
  Transmission Date: 20100710
  Serious: Yes (Hospitalization)
  Sender: FDA-Public Use
  Company Number: GB-WYE-H13404610

PATIENT

DRUGS (2)
  1. TYGACIL [Suspect]
     Indication: ENDOCARDITIS ENTEROCOCCAL
     Route: 042
  2. TYGACIL [Suspect]
     Indication: BACTERAEMIA

REACTIONS (3)
  - BACTERAEMIA [None]
  - DRUG INEFFECTIVE [None]
  - ENTEROCOCCAL INFECTION [None]
